FAERS Safety Report 7808052-3 (Version None)
Quarter: 2011Q4

REPORT INFORMATION
  Report Type: 
  Country: None (occurrence: None)
  Receive Date: 20111011
  Receipt Date: 20111007
  Transmission Date: 20120403
  Serious: Yes (Life-Threatening)
  Sender: FDA-Public Use
  Company Number: JP-BAYER-2011-086119

PATIENT
  Age: 83 Year
  Sex: Female
  Weight: 47 kg

DRUGS (4)
  1. ASPIRIN [Concomitant]
     Route: 048
  2. MAGNEVIST [Suspect]
     Indication: NUCLEAR MAGNETIC RESONANCE IMAGING BRAIN
     Dosage: DAILY DOSE 9.4 ML
     Route: 042
     Dates: start: 20110908, end: 20110908
  3. AMLODIPINE [Suspect]
     Indication: HYPERTENSION
     Route: 048
  4. ALLOPURINOL [Concomitant]
     Indication: LIPID METABOLISM DISORDER
     Route: 048

REACTIONS (7)
  - PULSE PRESSURE DECREASED [None]
  - BLOOD PRESSURE DECREASED [None]
  - ANAPHYLACTIC REACTION [None]
  - CHEST PAIN [None]
  - LOSS OF CONSCIOUSNESS [None]
  - FEELING HOT [None]
  - GAZE PALSY [None]
